FAERS Safety Report 10534108 (Version 1)
Quarter: 2014Q4

REPORT INFORMATION
  Report Type: Spontaneous
  Country: US (occurrence: None)
  Receive Date: 20141020
  Receipt Date: 20141020
  Transmission Date: 20150529
  Serious: Yes (Hospitalization)
  Sender: FDA-Public Use
  Company Number: INT_00473_2014

PATIENT
  Age: 42 Year
  Sex: Male

DRUGS (1)
  1. CISPLATIN (HQ SPECIALTY) [Suspect]
     Active Substance: CISPLATIN
     Indication: TESTIS CANCER

REACTIONS (9)
  - Acute kidney injury [None]
  - Haemodialysis [None]
  - Incorrect dose administered [None]
  - Respiratory failure [None]
  - Deafness [None]
  - Oropharyngeal candidiasis [None]
  - Pneumonia [None]
  - Toxicity to various agents [None]
  - Liver injury [None]
